FAERS Safety Report 10152875 (Version 2)
Quarter: 2014Q2

REPORT INFORMATION
  Report Type: Report from Study
  Country: US (occurrence: US)
  Receive Date: 20140505
  Receipt Date: 20140530
  Transmission Date: 20141212
  Serious: Yes (Death)
  Sender: FDA-Public Use
  Company Number: PHEH2014US008950

PATIENT
  Sex: Male

DRUGS (2)
  1. SANDOSTATIN LAR DEPOT [Suspect]
     Dosage: 30 MG, UNK
  2. TRILEPTAL [Suspect]
     Dosage: 600 MG, UNK
     Route: 048

REACTIONS (2)
  - Arrhythmia [Fatal]
  - Arteriosclerosis [Fatal]
